FAERS Safety Report 6232201-4 (Version None)
Quarter: 2009Q2

REPORT INFORMATION
  Report Type: 
  Country: None (occurrence: None)
  Receive Date: 20090615
  Receipt Date: 20090615
  Transmission Date: 20091009
  Serious: Yes (Hospitalization)
  Sender: FDA-Public Use
  Company Number: None

PATIENT
  Age: 87 Year
  Sex: Male

DRUGS (2)
  1. ASPIRIN AND DIPYRIDAMOLE [Suspect]
     Indication: CEREBROVASCULAR ACCIDENT
     Dosage: 1 TAB BID PO
     Route: 048
     Dates: start: 20050909, end: 20090603
  2. ASPIRIN [Suspect]
     Indication: CEREBROVASCULAR ACCIDENT
     Dosage: 81 MG EVERY DAY PO
     Route: 048
     Dates: start: 20081103, end: 20090603

REACTIONS (3)
  - GASTRIC HAEMORRHAGE [None]
  - HAEMOGLOBIN DECREASED [None]
  - LOWER GASTROINTESTINAL HAEMORRHAGE [None]
